FAERS Safety Report 21181809 (Version 1)
Quarter: 2022Q3

REPORT INFORMATION
  Report Type: Spontaneous
  Country: CZ (occurrence: CZ)
  Receive Date: 20220806
  Receipt Date: 20220806
  Transmission Date: 20221026
  Serious: Yes (Death, Life-Threatening, Hospitalization, Other)
  Sender: FDA-Public Use
  Company Number: CZ-AMGEN-CZESP2022132859

PATIENT

DRUGS (9)
  1. FILGRASTIM [Suspect]
     Active Substance: FILGRASTIM
     Indication: Product used for unknown indication
     Dosage: UNK
     Route: 065
  2. BLINATUMOMAB [Suspect]
     Active Substance: BLINATUMOMAB
     Indication: Diffuse large B-cell lymphoma
     Route: 065
  3. BLINATUMOMAB [Suspect]
     Active Substance: BLINATUMOMAB
     Indication: Off label use
  4. POLATUZUMAB VEDOTIN [Suspect]
     Active Substance: POLATUZUMAB VEDOTIN
     Indication: Product used for unknown indication
     Dosage: 1.8 MILLIGRAM/KILOGRAM
     Route: 065
  5. BENDAMUSTINE [Suspect]
     Active Substance: BENDAMUSTINE
     Indication: Product used for unknown indication
     Dosage: 70 MG/M2 - 90 MG/M2 AT DISCRETION OF TREATING PHYSICIANS ON DAY 1 AND 2
     Route: 065
  6. PLATINUM [Suspect]
     Active Substance: PLATINUM
     Indication: Product used for unknown indication
     Dosage: UNK
     Route: 065
  7. GEMCITABINE [Suspect]
     Active Substance: GEMCITABINE
     Indication: Product used for unknown indication
     Route: 065
  8. METHOTREXATE [Suspect]
     Active Substance: METHOTREXATE
     Indication: Product used for unknown indication
     Route: 065
  9. LENALIDOMIDE [Suspect]
     Active Substance: LENALIDOMIDE
     Indication: Product used for unknown indication
     Route: 065

REACTIONS (18)
  - Infection [Fatal]
  - Death [Fatal]
  - Diffuse large B-cell lymphoma recurrent [Fatal]
  - Urosepsis [Fatal]
  - Pneumonia [Fatal]
  - Clostridium difficile colitis [Fatal]
  - Renal failure [Fatal]
  - Multiple organ dysfunction syndrome [Fatal]
  - Haemorrhage [Fatal]
  - Neutropenia [Unknown]
  - Thrombocytopenia [Unknown]
  - Anaemia [Unknown]
  - Adverse event [Unknown]
  - Neuropathy peripheral [Unknown]
  - Myelosuppression [Unknown]
  - Squamous cell carcinoma of skin [Unknown]
  - Off label use [Unknown]
  - Therapy partial responder [Unknown]
